FAERS Safety Report 23890593 (Version 1)
Quarter: 2024Q2

REPORT INFORMATION
  Report Type: Report from Study
  Country: US (occurrence: US)
  Receive Date: 20240523
  Receipt Date: 20240523
  Transmission Date: 20240715
  Serious: Yes (Hospitalization)
  Sender: FDA-Public Use
  Company Number: US-Eisai-EC-2024-164217

PATIENT
  Age: 65 Year
  Sex: Male
  Weight: 100 kg

DRUGS (8)
  1. LENVIMA [Suspect]
     Active Substance: LENVATINIB
     Indication: Renal cancer
     Dosage: STOPPED: APR-2024
     Route: 048
     Dates: start: 20240411
  2. LENVIMA [Suspect]
     Active Substance: LENVATINIB
     Dosage: FREQUENCY: TAKE FOR 2 WEEKS AND OFF FOR 3 DAYS AND CONTINUE.
     Route: 048
     Dates: start: 202404
  3. EVEROLIMUS [Concomitant]
     Active Substance: EVEROLIMUS
  4. ATORVASTATIN CALCIUM [Concomitant]
     Active Substance: ATORVASTATIN CALCIUM
  5. AMLODIPINE BESYLATE [Concomitant]
     Active Substance: AMLODIPINE BESYLATE
  6. METOPROLOL SUCCINATE [Concomitant]
     Active Substance: METOPROLOL SUCCINATE
  7. HYDROCHLOROTHIAZIDE [Concomitant]
     Active Substance: HYDROCHLOROTHIAZIDE
  8. MULTIVITAMIN 50 PLUS [Concomitant]

REACTIONS (2)
  - Abdominal pain upper [Recovering/Resolving]
  - Diarrhoea [Recovering/Resolving]

NARRATIVE: CASE EVENT DATE: 20240401
